FAERS Safety Report 25069509 (Version 1)
Quarter: 2025Q1

REPORT INFORMATION
  Report Type: Spontaneous
  Country: US (occurrence: US)
  Receive Date: 20250312
  Receipt Date: 20250312
  Transmission Date: 20250409
  Serious: Yes (Death)
  Sender: R-PHARM US LLC
  Company Number: US-R-PHARM US LLC-2025RPM00001

PATIENT
  Age: 64 Year
  Sex: Female

DRUGS (1)
  1. IXEMPRA [Suspect]
     Active Substance: IXABEPILONE
     Indication: Breast cancer female
     Dates: start: 20250114

REACTIONS (2)
  - Death [Fatal]
  - Product dose omission issue [Recovered/Resolved]

NARRATIVE: CASE EVENT DATE: 20250204
